FAERS Safety Report 8348488-8 (Version None)
Quarter: 2012Q2

REPORT INFORMATION
  Report Type: 
  Country: None (occurrence: None)
  Receive Date: 20120509
  Receipt Date: 20120503
  Transmission Date: 20120825
  Serious: Yes (Hospitalization, Congenital Anomaly)
  Sender: FDA-Public Use
  Company Number: US-MERCK-1205USA00802B1

PATIENT
  Age: 1 Day

DRUGS (2)
  1. JANUVIA [Suspect]
     Indication: GESTATIONAL DIABETES
     Route: 064
     Dates: end: 20120501
  2. ALAVERT [Concomitant]
     Route: 064

REACTIONS (2)
  - FOETAL EXPOSURE DURING PREGNANCY [None]
  - CLEFT LIP AND PALATE [None]
